FAERS Safety Report 14891015 (Version 1)
Quarter: 2018Q2

REPORT INFORMATION
  Report Type: Spontaneous
  Country: US (occurrence: US)
  Receive Date: 20180514
  Receipt Date: 20180514
  Transmission Date: 20180711
  Serious: No
  Sender: FDA-Public Use
  Company Number: US-UNITED THERAPEUTICS-UNT-2018-002608

PATIENT
  Age: 53 Year
  Sex: Female
  Weight: 91.61 kg

DRUGS (3)
  1. ORENITRAM [Suspect]
     Active Substance: TREPROSTINIL
     Dosage: 0.25 MG, BID
     Route: 048
  2. ORENITRAM [Suspect]
     Active Substance: TREPROSTINIL
     Indication: PULMONARY ARTERIAL HYPERTENSION
     Dosage: 0.75 MG, BID
     Route: 048
     Dates: start: 20180130
  3. ORENITRAM [Suspect]
     Active Substance: TREPROSTINIL
     Dosage: UNK
     Route: 048

REACTIONS (7)
  - Myalgia [Recovering/Resolving]
  - Abdominal discomfort [Unknown]
  - Peripheral swelling [Unknown]
  - Therapy non-responder [Recovered/Resolved]
  - Dyspnoea exertional [Unknown]
  - Rales [Unknown]
  - Hypotension [Unknown]

NARRATIVE: CASE EVENT DATE: 20180220
